FAERS Safety Report 9227934 (Version 1)
Quarter: 2013Q2

REPORT INFORMATION
  Report Type: Spontaneous
  Country: US (occurrence: US)
  Receive Date: 20130412
  Receipt Date: 20130412
  Transmission Date: 20140414
  Serious: Yes (Hospitalization, Other)
  Sender: FDA-Public Use
  Company Number: US-JNJFOC-20130402467

PATIENT
  Age: 48 Year
  Sex: Male

DRUGS (3)
  1. DURAGESIC [Suspect]
     Indication: ABDOMINAL PAIN UPPER
     Route: 062
     Dates: start: 2013
  2. DURAGESIC [Suspect]
     Indication: ABDOMINAL PAIN UPPER
     Route: 062
     Dates: start: 2013, end: 2013
  3. UNSPECIFIED FENTANYLTRANSDERMAL SYSTEM [Suspect]
     Indication: ABDOMINAL PAIN UPPER
     Route: 062
     Dates: start: 2013, end: 2013

REACTIONS (2)
  - Road traffic accident [Recovered/Resolved]
  - Drug abuse [Unknown]
